FAERS Safety Report 6927716-7 (Version None)
Quarter: 2010Q3

REPORT INFORMATION
  Report Type: 
  Country: None (occurrence: None)
  Receive Date: 20100817
  Receipt Date: 20100806
  Transmission Date: 20110219
  Serious: Yes (Hospitalization)
  Sender: FDA-Public Use
  Company Number: PHHY2010NL47931

PATIENT
  Weight: 3.35 kg

DRUGS (8)
  1. S-OIV FOCETRIA 7.5AG 100% MF59 V-V111-A+INJ [Suspect]
     Route: 064
     Dates: start: 20091120, end: 20091120
  2. S-OIV FOCETRIA 7.5AG 100% MF59 V-V111-A+INJ [Suspect]
     Route: 064
     Dates: start: 20091211, end: 20091211
  3. VOLTAREN [Suspect]
     Dosage: 75 MG
     Route: 064
     Dates: start: 20100405, end: 20100401
  4. PETHIDINE [Suspect]
     Indication: PAIN
     Dosage: UNK
     Route: 064
     Dates: start: 20100405, end: 20100401
  5. PHENERGAN [Suspect]
     Indication: SLEEP DISORDER
     Dosage: UNK
     Route: 064
     Dates: start: 20100405, end: 20100401
  6. REMIFENTANIL [Suspect]
     Indication: PAIN
     Dosage: UNK
     Route: 064
     Dates: start: 20100405
  7. FOLIC ACID [Concomitant]
     Route: 064
  8. OPIAT ANALGESICS [Concomitant]
     Indication: PAIN
     Dosage: UNK
     Route: 064
     Dates: start: 20100401, end: 20100401

REACTIONS (5)
  - DRUG EXPOSURE DURING PREGNANCY [None]
  - DYSPNOEA [None]
  - MOANING [None]
  - OXYGEN SATURATION [None]
  - PALLOR [None]
